FAERS Safety Report 9746918 (Version 3)
Quarter: 2014Q1

REPORT INFORMATION
  Report Type: Report from Study
  Country: US (occurrence: US)
  Receive Date: 20131211
  Receipt Date: 20140207
  Transmission Date: 20141002
  Serious: Yes (Hospitalization)
  Sender: FDA-Public Use
  Company Number: US-SA-2013SA126135

PATIENT
  Age: 59 Year
  Sex: Female
  Weight: 77 kg

DRUGS (1)
  1. AUBAGIO [Suspect]
     Indication: MULTIPLE SCLEROSIS
     Route: 048
     Dates: start: 201304, end: 20131101

REACTIONS (4)
  - Electrocardiogram change [Recovered/Resolved]
  - Blood pressure increased [Recovered/Resolved]
  - Alopecia [Recovered/Resolved]
  - Herpes zoster [Recovered/Resolved]
